FAERS Safety Report 16124372 (Version 1)
Quarter: 2019Q1

REPORT INFORMATION
  Report Type: Spontaneous
  Country: FR (occurrence: FR)
  Receive Date: 20190327
  Receipt Date: 20190327
  Transmission Date: 20190418
  Serious: Yes (Other)
  Sender: FDA-Public Use
  Company Number: FR-GILEAD-2019-0390488

PATIENT
  Age: 64 Year
  Sex: Female

DRUGS (12)
  1. PARACETAMOL [Concomitant]
     Active Substance: ACETAMINOPHEN
  2. DULOXETINE. [Concomitant]
     Active Substance: DULOXETINE
  3. BROMAZEPAM [Concomitant]
     Active Substance: BROMAZEPAM
  4. LEVOTHYROX [Concomitant]
     Active Substance: LEVOTHYROXINE
  5. ZANEXTRA [Concomitant]
     Active Substance: ENALAPRIL MALEATE\LERCANIDIPINE HYDROCHLORIDE
  6. LERCAN [Concomitant]
     Active Substance: LERCANIDIPINE
  7. ACTISKENAN [Concomitant]
     Active Substance: MORPHINE SULFATE
  8. ZOLPIDEM [Concomitant]
     Active Substance: ZOLPIDEM\ZOLPIDEM TARTRATE
  9. NEBIVOLOL. [Concomitant]
     Active Substance: NEBIVOLOL
  10. SKENAN [Concomitant]
     Active Substance: MORPHINE SULFATE
  11. HARVONI [Suspect]
     Active Substance: LEDIPASVIR\SOFOSBUVIR
     Indication: CHRONIC HEPATITIS C
     Dosage: UNK
     Route: 065
     Dates: start: 201802
  12. LYRICA [Concomitant]
     Active Substance: PREGABALIN

REACTIONS (2)
  - Treatment failure [Not Recovered/Not Resolved]
  - Genotype drug resistance test positive [Unknown]

NARRATIVE: CASE EVENT DATE: 201901
